FAERS Safety Report 5129974-0 (Version None)
Quarter: 2006Q4

REPORT INFORMATION
  Report Type: 
  Country: None (occurrence: None)
  Receive Date: 20061013
  Receipt Date: 20060929
  Transmission Date: 20070319
  Serious: Yes (Life-Threatening)
  Sender: FDA-Public Use
  Company Number: 2006RR-03777

PATIENT
  Age: 46 Year
  Sex: Male

DRUGS (5)
  1. SIMVASTATIN [Suspect]
     Indication: HYPERCHOLESTEROLAEMIA
     Dosage: 40 MG, QD, ORAL
     Route: 048
  2. CLOZAPINE [Suspect]
     Dosage: ORAL
     Route: 048
     Dates: start: 19951031, end: 20040809
  3. AMISULPRIDE (AMISULPRIDE) [Concomitant]
  4. RAMIPRIL [Suspect]
     Indication: HYPERTENSION
     Dosage: 5 MG, BID, ORAL
     Route: 048
  5. CLOZAPINE [Suspect]
     Dosage: SINGLE, ORAL
     Route: 048
     Dates: start: 20040810

REACTIONS (6)
  - ABDOMINAL DISTENSION [None]
  - DEHYDRATION [None]
  - FALL [None]
  - HYPOTENSION [None]
  - PANCREATITIS [None]
  - RENAL FAILURE ACUTE [None]
